FAERS Safety Report 23658908 (Version 1)
Quarter: 2024Q1

REPORT INFORMATION
  Report Type: Report from Study
  Country: US (occurrence: US)
  Receive Date: 20240321
  Receipt Date: 20240321
  Transmission Date: 20240410
  Serious: Yes (Hospitalization, Other)
  Sender: FDA-Public Use
  Company Number: US-PFIZER INC-202400057329

PATIENT
  Age: 74 Year
  Sex: Female

DRUGS (15)
  1. IBRANCE [Suspect]
     Active Substance: PALBOCICLIB
     Dosage: 125 MG DAILY 21 DAYS ON 7 OFF
     Route: 048
  2. IBRANCE [Suspect]
     Active Substance: PALBOCICLIB
     Dosage: 125 MG, DAILY
     Route: 048
  3. CALCIUM CARBONATE\CHOLECALCIFEROL [Concomitant]
     Active Substance: CALCIUM CARBONATE\CHOLECALCIFEROL
  4. DECADRON [Concomitant]
     Active Substance: DEXAMETHASONE
  5. FEMARA [Concomitant]
     Active Substance: LETROZOLE
  6. FOLIC ACID [Concomitant]
     Active Substance: FOLIC ACID
     Route: 048
  7. FOLVITE D [Concomitant]
  8. LETROZOLE [Concomitant]
     Active Substance: LETROZOLE
  9. LIDODERM [Concomitant]
     Active Substance: LIDOCAINE
  10. LISINOPRIL [Concomitant]
     Active Substance: LISINOPRIL
     Route: 048
  11. LYRICA [Concomitant]
     Active Substance: PREGABALIN
  12. PRINIVIL [Concomitant]
     Active Substance: LISINOPRIL
  13. VITAMIN B12 [Concomitant]
     Active Substance: CYANOCOBALAMIN
  14. VITAMIN D3 [Concomitant]
     Active Substance: CHOLECALCIFEROL
  15. SENNA LEAF [Concomitant]
     Active Substance: SENNA LEAF

REACTIONS (5)
  - Fatigue [Unknown]
  - Decreased appetite [Unknown]
  - Dyspnoea [Unknown]
  - Heart rate increased [Unknown]
  - Pneumonia [Not Recovered/Not Resolved]

NARRATIVE: CASE EVENT DATE: 20240304
